FAERS Safety Report 23570424 (Version 1)
Quarter: 2024Q1

REPORT INFORMATION
  Report Type: Spontaneous
  Country: US (occurrence: None)
  Receive Date: 20240226
  Receipt Date: 20240226
  Transmission Date: 20240409
  Serious: Yes (Hospitalization)
  Sender: FDA-Public Use
  Company Number: None

PATIENT
  Sex: Male

DRUGS (1)
  1. NIVESTYM [Suspect]
     Active Substance: FILGRASTIM-AAFI
     Indication: Hodgkin^s disease
     Dosage: OTHER STRENGTH : 480MCG/0.8ML;?FREQUENCY : TWICE A WEEK;?
     Route: 058
     Dates: start: 202302

REACTIONS (1)
  - Infection [None]
